FAERS Safety Report 10225048 (Version 1)
Quarter: 2014Q2

REPORT INFORMATION
  Report Type: Spontaneous
  Country: US (occurrence: US)
  Receive Date: 20140609
  Receipt Date: 20140609
  Transmission Date: 20141212
  Serious: No
  Sender: FDA-Public Use
  Company Number: US-PFIZER INC-2014154775

PATIENT
  Age: 54 Year
  Sex: Male
  Weight: 107 kg

DRUGS (5)
  1. ADVIL [Suspect]
     Indication: BACK PAIN
     Dosage: 200MG, 2 TIMES A DAY
     Route: 048
  2. ADVIL [Suspect]
     Indication: PAIN IN EXTREMITY
  3. ADVIL [Suspect]
     Indication: MUSCULOSKELETAL PAIN
  4. LISINOPRIL [Concomitant]
     Indication: HYPERTENSION
     Dosage: 20 MG, DAILY
  5. ATORVASTATIN [Concomitant]
     Indication: BLOOD CHOLESTEROL ABNORMAL
     Dosage: 40 MG, DAILY

REACTIONS (1)
  - Drug ineffective [Unknown]
